FAERS Safety Report 5025143-3 (Version None)
Quarter: 2006Q2

REPORT INFORMATION
  Report Type: 
  Country: None (occurrence: None)
  Receive Date: 20060613
  Receipt Date: 20060609
  Transmission Date: 20061013
  Serious: Yes (Other)
  Sender: FDA-Public Use
  Company Number: US-JNJFOC-20060602327

PATIENT
  Age: 80 Year
  Sex: Male
  Weight: 81.65 kg

DRUGS (7)
  1. LEVAQUIN [Suspect]
     Indication: CYSTITIS
     Route: 048
  2. LASIX [Concomitant]
  3. POTASSIUM [Concomitant]
  4. COZAAR [Concomitant]
  5. ZETIA [Concomitant]
  6. SIMVASTATIN [Concomitant]
  7. TOMOPTIC [Concomitant]

REACTIONS (1)
  - MUSCLE INJURY [None]
